FAERS Safety Report 18343598 (Version 1)
Quarter: 2020Q4

REPORT INFORMATION
  Report Type: Spontaneous
  Country: RS (occurrence: RS)
  Receive Date: 20201005
  Receipt Date: 20201005
  Transmission Date: 20210113
  Serious: Yes (Hospitalization, Other)
  Sender: FDA-Public Use
  Company Number: RS-JUBILANT CADISTA PHARMACEUTICALS-2020JUB00294

PATIENT
  Age: 55 Year
  Sex: Male

DRUGS (2)
  1. OLANZAPINE. [Suspect]
     Active Substance: OLANZAPINE
     Dosage: 350 MG, ONCE
     Route: 048
  2. OLANZAPINE. [Suspect]
     Active Substance: OLANZAPINE
     Dosage: 15 MG, 1X/DAY
     Route: 065

REACTIONS (5)
  - Overdose [Recovered/Resolved]
  - Mental status changes [Recovered/Resolved]
  - Neutropenia [Recovered/Resolved]
  - Respiratory failure [Recovered/Resolved]
  - Connective tissue disorder [Recovered/Resolved]
